FAERS Safety Report 8121782-1 (Version None)
Quarter: 2012Q1

REPORT INFORMATION
  Report Type: 
  Country: None (occurrence: None)
  Receive Date: 20120208
  Receipt Date: 20120206
  Transmission Date: 20120608
  Serious: Yes (Other)
  Sender: FDA-Public Use
  Company Number: US-AMGEN-US266305

PATIENT
  Age: 73 Year
  Sex: Male

DRUGS (3)
  1. ROMIPLOSTIM [Suspect]
     Indication: MYELODYSPLASTIC SYNDROME
     Dosage: UNK BLINDED, QWK
     Route: 058
     Dates: start: 20070116, end: 20071211
  2. EPOGEN [Concomitant]
     Dosage: 40000 IU, QWK
     Route: 065
  3. AZACITIDINE [Concomitant]
     Dosage: UNK UNK, UNK
     Route: 065
     Dates: start: 20070116, end: 20071126

REACTIONS (1)
  - MYELOFIBROSIS [None]
